FAERS Safety Report 4874709-X (Version None)
Quarter: 2006Q1

REPORT INFORMATION
  Report Type: 
  Country: None (occurrence: None)
  Receive Date: 20060106
  Receipt Date: 20051010
  Transmission Date: 20060701
  Serious: Yes (Hospitalization)
  Sender: FDA-Public Use
  Company Number: DE-MERCK-0510DEU00034

PATIENT
  Age: 61 Year
  Sex: Female

DRUGS (7)
  1. VIOXX [Suspect]
     Indication: MUSCULOSKELETAL PAIN
     Route: 048
     Dates: start: 20000101
  2. VIOXX [Suspect]
     Route: 048
     Dates: start: 20000913, end: 20001001
  3. VIOXX [Suspect]
     Indication: TENSION
     Route: 048
     Dates: start: 20000101
  4. VIOXX [Suspect]
     Route: 048
     Dates: start: 20000913, end: 20001001
  5. IBUPROFEN [Concomitant]
     Indication: CAUDA EQUINA SYNDROME
     Route: 065
     Dates: start: 20000918
  6. DICLOFENAC [Concomitant]
     Route: 048
     Dates: start: 20020307
  7. DICLOFENAC [Concomitant]
     Route: 048
     Dates: start: 20040730

REACTIONS (3)
  - CARDIAC DISORDER [None]
  - HEART RATE IRREGULAR [None]
  - PAIN [None]
